FAERS Safety Report 15718182 (Version 1)
Quarter: 2018Q4

REPORT INFORMATION
  Report Type: Spontaneous
  Country: US (occurrence: US)
  Receive Date: 20181213
  Receipt Date: 20181213
  Transmission Date: 20190205
  Serious: No
  Sender: FDA-Public Use
  Company Number: US-ASTELLAS-2018US034291

PATIENT
  Sex: Female
  Weight: 45 kg

DRUGS (1)
  1. TARCEVA [Suspect]
     Active Substance: ERLOTINIB HYDROCHLORIDE
     Indication: LUNG NEOPLASM MALIGNANT
     Dosage: 25 MG, ONCE DAILY (1 TAB 1 TIME DAILY 1HR BEFORE OR 2HR AFTER EATING)
     Route: 048
     Dates: start: 20160601

REACTIONS (3)
  - Headache [Recovering/Resolving]
  - Abdominal pain upper [Recovering/Resolving]
  - Discomfort [Recovering/Resolving]
